FAERS Safety Report 6028798-X (Version None)
Quarter: 2009Q1

REPORT INFORMATION
  Report Type: 
  Country: None (occurrence: None)
  Receive Date: 20090106
  Receipt Date: 20081230
  Transmission Date: 20090719
  Serious: Yes (Hospitalization, Other)
  Sender: FDA-Public Use
  Company Number: B0552609A

PATIENT
  Age: 67 Year
  Sex: Male

DRUGS (3)
  1. FORTAM [Suspect]
     Indication: SKIN INFECTION
     Dosage: 3G PER DAY
     Route: 042
     Dates: start: 20080303, end: 20080308
  2. SEROQUEL [Suspect]
     Indication: MENTAL DISORDER
     Dosage: 25MG PER DAY
     Route: 048
     Dates: start: 20080306, end: 20080307
  3. ZYVOXID [Suspect]
     Indication: SKIN INFECTION
     Dosage: 1200MG PER DAY
     Route: 048
     Dates: start: 20080306, end: 20080307

REACTIONS (3)
  - DELIRIUM [None]
  - HYPERREFLEXIA [None]
  - MYOCLONUS [None]
